FAERS Safety Report 6186258-X (Version None)
Quarter: 2009Q2

REPORT INFORMATION
  Report Type: 
  Country: None (occurrence: None)
  Receive Date: 20090511
  Receipt Date: 20090429
  Transmission Date: 20091009
  Serious: Yes (Hospitalization)
  Sender: FDA-Public Use
  Company Number: US-PFIZER INC-2007005747

PATIENT
  Sex: Male
  Weight: 75.749 kg

DRUGS (7)
  1. CHANTIX [Suspect]
     Indication: SMOKING CESSATION THERAPY
     Dosage: 0.5 MG, 1X/DAY
     Dates: start: 20061201
  2. ADVAIR HFA [Concomitant]
  3. PROZAC [Concomitant]
     Dosage: UNK
  4. LODOZ [Concomitant]
     Dosage: UNK
  5. DOXYCYCLINE [Concomitant]
     Dosage: UNK
  6. PERIOSTAT [Concomitant]
     Dosage: UNK
  7. XANAX [Concomitant]
     Indication: SLEEP DISORDER
     Dosage: UNK

REACTIONS (6)
  - BRONCHITIS [None]
  - DRUG INEFFECTIVE [None]
  - DYSGEUSIA [None]
  - NAUSEA [None]
  - STRESS [None]
  - TOBACCO USER [None]
